FAERS Safety Report 25130768 (Version 2)
Quarter: 2025Q2

REPORT INFORMATION
  Report Type: Spontaneous
  Country: CA (occurrence: CA)
  Receive Date: 20250327
  Receipt Date: 20250619
  Transmission Date: 20250717
  Serious: Yes (Other)
  Sender: TAKEDA
  Company Number: CA-TAKEDA-2025TUS029703

PATIENT

DRUGS (6)
  1. DEXILANT [Suspect]
     Active Substance: DEXLANSOPRAZOLE
     Indication: Product used for unknown indication
  2. DEXILANT [Suspect]
     Active Substance: DEXLANSOPRAZOLE
  3. PANTOPRAZOLE [Suspect]
     Active Substance: PANTOPRAZOLE
     Indication: Product used for unknown indication
  4. PROBIOTICS NOS [Suspect]
     Active Substance: PROBIOTICS NOS
     Indication: Product used for unknown indication
  5. PROGESTERONE [Suspect]
     Active Substance: PROGESTERONE
     Indication: Product used for unknown indication
  6. TITANIUM DIOXIDE [Suspect]
     Active Substance: TITANIUM DIOXIDE
     Indication: Product used for unknown indication

REACTIONS (9)
  - Madarosis [Unknown]
  - Abdominal pain upper [Unknown]
  - Hypersensitivity [Unknown]
  - Abdominal distension [Unknown]
  - Sensitive skin [Unknown]
  - Vaginal disorder [Unknown]
  - Decreased appetite [Unknown]
  - Headache [Unknown]
  - Nausea [Unknown]
